FAERS Safety Report 4810308-3 (Version None)
Quarter: 2005Q4

REPORT INFORMATION
  Report Type: 
  Country: None (occurrence: None)
  Receive Date: 20051025
  Receipt Date: 20051025
  Transmission Date: 20060501
  Serious: Yes (Other)
  Sender: FDA-Public Use
  Company Number: None

PATIENT
  Age: 72 Year
  Sex: Male
  Weight: 92.1 kg

DRUGS (17)
  1. FOSINOPRIL [Suspect]
  2. CLOPIDOGREL BISULFATE [Concomitant]
  3. ADALAT CC [Concomitant]
  4. DOCUSATE [Concomitant]
  5. SIMVASTATIN [Concomitant]
  6. METOPROLOL TARTRATE [Concomitant]
  7. TAMSULOSIN HCL [Concomitant]
  8. GABAPENTIN [Concomitant]
  9. HYDROCORTISONE [Concomitant]
  10. VALSARTAN [Concomitant]
  11. LIDOCAINE [Concomitant]
  12. FOSINOPRIL SODIUM [Concomitant]
  13. FLUNISOLIDE [Concomitant]
  14. SODIUM CHLORIDE [Concomitant]
  15. OMEPRAZOLE [Concomitant]
  16. GLYBURIDE [Concomitant]
  17. DIPHENHYDRAMINE HCL [Concomitant]

REACTIONS (1)
  - COUGH [None]
